FAERS Safety Report 6515374-5 (Version None)
Quarter: 2009Q4

REPORT INFORMATION
  Report Type: 
  Country: None (occurrence: None)
  Receive Date: 20091223
  Receipt Date: 20091210
  Transmission Date: 20100525
  Serious: Yes (Hospitalization)
  Sender: FDA-Public Use
  Company Number: PHHY2009IE52846

PATIENT
  Sex: Male

DRUGS (5)
  1. CLOZARIL [Suspect]
     Indication: SCHIZOPHRENIA
     Dosage: 250 MG, UNK
     Route: 048
     Dates: start: 20091109, end: 20091129
  2. LARGACTIL [Concomitant]
     Dosage: 150 MG, UNK
     Route: 048
     Dates: start: 20091001, end: 20091101
  3. ATIVAN [Concomitant]
     Dosage: 0.25 MG, BID
     Dates: end: 20091101
  4. ABILIFY [Concomitant]
     Dosage: 15 MG, BID
     Dates: start: 20090101
  5. RISPERIDONE [Concomitant]
     Dosage: 6 MG, UNK
     Dates: start: 20090101

REACTIONS (4)
  - BLOOD PRESSURE DECREASED [None]
  - CHEST PAIN [None]
  - MYOCARDITIS [None]
  - TROPONIN INCREASED [None]
